FAERS Safety Report 15304852 (Version 1)
Quarter: 2018Q4

REPORT INFORMATION
  Report Type: Report from Study
  Country: US (occurrence: US)
  Receive Date: 20180822
  Receipt Date: 20180822
  Transmission Date: 20190204
  Serious: Yes (Hospitalization, Other)
  Sender: FDA-Public Use
  Company Number: US-BRISTOL-MYERS SQUIBB COMPANY-BMS-2018-077253

PATIENT
  Age: 43 Year
  Sex: Male
  Weight: 79.4 kg

DRUGS (7)
  1. MESNA. [Concomitant]
     Active Substance: MESNA
     Indication: PRODUCT USED FOR UNKNOWN INDICATION
     Route: 065
  2. NY-ESO-1 TCR [Suspect]
     Active Substance: INVESTIGATIONAL PRODUCT
     Indication: METASTASES TO LUNG
     Dosage: 1 DF, UNK
     Route: 042
     Dates: start: 20180411
  3. INTERLEUKIN-2 [Suspect]
     Active Substance: ALDESLEUKIN
     Indication: METASTASES TO LUNG
     Dosage: 1 DF, UNK
     Route: 058
     Dates: start: 20180412, end: 20180418
  4. PEPTIDE PULSED DC VACCINE [Suspect]
     Active Substance: INVESTIGATIONAL PRODUCT
     Indication: METASTASES TO LUNG
     Dosage: 1 DF, UNK
     Route: 065
     Dates: start: 20180412, end: 20180418
  5. FLUDARABINE [Concomitant]
     Active Substance: FLUDARABINE PHOSPHATE
     Indication: PRODUCT USED FOR UNKNOWN INDICATION
     Dosage: 25 MG/M2, UNK
     Route: 065
     Dates: start: 20180408, end: 20180410
  6. NIVOLUMAB [Suspect]
     Active Substance: NIVOLUMAB
     Indication: METASTASES TO LUNG
     Dosage: 1 MG/KG, Q2WK
     Route: 065
     Dates: start: 20180411, end: 20180803
  7. CYCLOPHOSPHAMIDE. [Concomitant]
     Active Substance: CYCLOPHOSPHAMIDE
     Indication: PRODUCT USED FOR UNKNOWN INDICATION
     Dosage: 60 MG/KG, UNK
     Route: 065
     Dates: start: 20180406, end: 20180407

REACTIONS (6)
  - Haemoglobin decreased [Unknown]
  - Tumour haemorrhage [Unknown]
  - Jaundice [Unknown]
  - Necrosis [Unknown]
  - Leukocytosis [Unknown]
  - Systemic inflammatory response syndrome [Unknown]

NARRATIVE: CASE EVENT DATE: 2018
